FAERS Safety Report 10016259 (Version 9)
Quarter: 2015Q4

REPORT INFORMATION
  Report Type: Report from Study
  Country: US (occurrence: US)
  Receive Date: 20140317
  Receipt Date: 20151103
  Transmission Date: 20160304
  Serious: Yes (Other)
  Sender: FDA-Public Use
  Company Number: US-SANOFI-AVENTIS-2013SA086705

PATIENT
  Age: 38 Year
  Sex: Male

DRUGS (2)
  1. AMITRIPTYLINE [Concomitant]
     Active Substance: AMITRIPTYLINE
  2. AUBAGIO [Suspect]
     Active Substance: TERIFLUNOMIDE
     Indication: MULTIPLE SCLEROSIS
     Dosage: TAKEN FROM-FOR ABOUT 2 MONTHS
     Route: 048
     Dates: start: 20130621

REACTIONS (18)
  - Asthenia [Not Recovered/Not Resolved]
  - Loss of consciousness [Unknown]
  - Dizziness [Recovered/Resolved]
  - Feeling abnormal [Recovering/Resolving]
  - Paraesthesia [Recovered/Resolved]
  - Vertigo [Unknown]
  - Memory impairment [Unknown]
  - Condition aggravated [Not Recovered/Not Resolved]
  - Blood pressure increased [Recovering/Resolving]
  - Headache [Not Recovered/Not Resolved]
  - Multiple sclerosis relapse [Not Recovered/Not Resolved]
  - Fatigue [Not Recovered/Not Resolved]
  - Hypovitaminosis [Unknown]
  - Visual impairment [Unknown]
  - Alopecia [Recovering/Resolving]
  - Depressed mood [Unknown]
  - Migraine [Not Recovered/Not Resolved]
  - Hypoaesthesia [Recovered/Resolved]

NARRATIVE: CASE EVENT DATE: 2014
